FAERS Safety Report 8472488 (Version 2)
Quarter: 2013Q2

REPORT INFORMATION
  Report Type: Spontaneous
  Country: US (occurrence: US)
  Receive Date: 20120322
  Receipt Date: 20130621
  Transmission Date: 20140414
  Serious: Yes (Hospitalization)
  Sender: FDA-Public Use
  Company Number: US-GLAXOSMITHKLINE-A0815211A

PATIENT
  Age: 63 Year
  Sex: Male
  Weight: 102.3 kg

DRUGS (5)
  1. AVANDIA [Suspect]
     Indication: DIABETES MELLITUS
     Dosage: 4MG TWICE PER DAY
     Route: 048
     Dates: end: 2003
  2. PRAVACHOL [Concomitant]
  3. LOPRESSOR [Concomitant]
  4. METFORMIN [Concomitant]
  5. VIOXX [Concomitant]

REACTIONS (2)
  - Cardiac failure congestive [Unknown]
  - Pericarditis [Unknown]
